FAERS Safety Report 13074495 (Version 2)
Quarter: 2017Q1

REPORT INFORMATION
  Report Type: Spontaneous
  Country: US (occurrence: US)
  Receive Date: 20161230
  Receipt Date: 20170223
  Transmission Date: 20170428
  Serious: Yes (Hospitalization)
  Sender: FDA-Public Use
  Company Number: US-009507513-1612USA012261

PATIENT
  Age: 22 Year
  Sex: Male

DRUGS (3)
  1. PREVACID [Concomitant]
     Active Substance: LANSOPRAZOLE
  2. TEMODAR [Suspect]
     Active Substance: TEMOZOLOMIDE
     Indication: ADENOMATOUS POLYPOSIS COLI
     Dosage: UNK
     Route: 048
     Dates: start: 20160916, end: 20160920
  3. VITAMINS (UNSPECIFIED) [Concomitant]
     Active Substance: VITAMINS

REACTIONS (2)
  - Product use issue [Unknown]
  - Adenomatous polyposis coli [Not Recovered/Not Resolved]

NARRATIVE: CASE EVENT DATE: 2016
